FAERS Safety Report 19945161 (Version 3)
Quarter: 2022Q1

REPORT INFORMATION
  Report Type: Report from Study
  Country: US (occurrence: US)
  Receive Date: 20211011
  Receipt Date: 20220202
  Transmission Date: 20220423
  Serious: Yes (Other)
  Sender: FDA-Public Use
  Company Number: US-ABBVIE-21K-163-4114081-00

PATIENT
  Sex: Female

DRUGS (5)
  1. RINVOQ [Suspect]
     Active Substance: UPADACITINIB
     Indication: Rheumatoid arthritis
     Route: 048
  2. RINVOQ [Suspect]
     Active Substance: UPADACITINIB
     Route: 048
  3. PFIZER-BIONTECH COVID-19 VACCINE [Suspect]
     Active Substance: TOZINAMERAN
     Indication: COVID-19 immunisation
     Dosage: FIRST DOSE.
     Route: 030
     Dates: start: 20210227, end: 20210227
  4. PFIZER-BIONTECH COVID-19 VACCINE [Suspect]
     Active Substance: TOZINAMERAN
     Dosage: SECOND DOSE.
     Route: 030
     Dates: start: 20210322, end: 20210322
  5. PFIZER-BIONTECH COVID-19 VACCINE [Suspect]
     Active Substance: TOZINAMERAN
     Dosage: THIRD DOSE.
     Route: 030
     Dates: start: 20211001, end: 20211001

REACTIONS (7)
  - Knee arthroplasty [Recovering/Resolving]
  - Urinary tract infection [Not Recovered/Not Resolved]
  - Skin laceration [Not Recovered/Not Resolved]
  - Vaccination site nodule [Recovered/Resolved]
  - Vaccination site pain [Recovered/Resolved]
  - Pain [Recovered/Resolved]
  - Sinusitis [Recovered/Resolved]

NARRATIVE: CASE EVENT DATE: 20210101
